FAERS Safety Report 10197213 (Version 1)
Quarter: 2014Q2

REPORT INFORMATION
  Report Type: Spontaneous
  Country: US (occurrence: None)
  Receive Date: 20140523
  Receipt Date: 20140523
  Transmission Date: 20141212
  Serious: Yes (Other)
  Sender: FDA-Public Use
  Company Number: None

PATIENT
  Age: 50 Year
  Sex: Female
  Weight: 70.76 kg

DRUGS (5)
  1. XARELTO [Suspect]
     Indication: DEEP VEIN THROMBOSIS
     Dosage: 1 PILL
     Route: 048
     Dates: start: 20140404, end: 20140518
  2. NEURONTIN [Concomitant]
  3. VICODIN [Concomitant]
  4. ALLBEE WITH C [Concomitant]
  5. FOLIC ACID [Concomitant]

REACTIONS (1)
  - Alopecia [None]
